FAERS Safety Report 17661426 (Version 1)
Quarter: 2020Q2

REPORT INFORMATION
  Report Type: Spontaneous
  Country: US (occurrence: US)
  Receive Date: 20200413
  Receipt Date: 20200413
  Transmission Date: 20200713
  Serious: No
  Sender: FDA-Public Use
  Company Number: US-ASTRAZENECA-2020SE47668

PATIENT
  Sex: Male
  Weight: 101.2 kg

DRUGS (11)
  1. METFORMIN HYDROCHLORIDE. [Concomitant]
     Active Substance: METFORMIN HYDROCHLORIDE
     Dosage: COMBINATION OF CANAGLIFLOZIN AND METFORMIN- 150/100MG TWICE DAILY
  2. BYDUREON BCISE [Suspect]
     Active Substance: EXENATIDE
     Indication: TYPE 2 DIABETES MELLITUS
     Route: 058
     Dates: start: 201802
  3. INVOKAMET XR [Concomitant]
     Active Substance: CANAGLIFLOZIN\METFORMIN HYDROCHLORIDE
     Dosage: COMBINATION OF CANAGLIFLOZIN AND METFORMIN- 150/100MG TWICE DAILY
  4. LABETOLOL [Concomitant]
     Active Substance: LABETALOL HYDROCHLORIDE
  5. BUPROPION. [Concomitant]
     Active Substance: BUPROPION
  6. ATORVASTATIN [Concomitant]
     Active Substance: ATORVASTATIN
  7. BYDUREON [Suspect]
     Active Substance: EXENATIDE
     Indication: TYPE 2 DIABETES MELLITUS
     Route: 058
     Dates: start: 2017
  8. XARATO [Concomitant]
  9. VARAPAMIL [Concomitant]
  10. CLONIDINE. [Concomitant]
     Active Substance: CLONIDINE
     Dosage: ONCE WEEKLY
  11. VITAMINS [Concomitant]
     Active Substance: VITAMINS

REACTIONS (5)
  - Injection site haemorrhage [Unknown]
  - Product dose omission [Unknown]
  - Device leakage [Unknown]
  - Weight increased [Unknown]
  - Injection site pain [Unknown]
